FAERS Safety Report 8869078 (Version 1)
Quarter: 2012Q4

REPORT INFORMATION
  Report Type: Spontaneous
  Country: US (occurrence: None)
  Receive Date: 20121022
  Receipt Date: 20121022
  Transmission Date: 20130627
  Serious: Yes (Other)
  Sender: FDA-Public Use
  Company Number: AUR-APL-2012-04399

PATIENT
  Age: 4 Month
  Sex: Female

DRUGS (1)
  1. FLUOXETINE [Suspect]
     Indication: DEPRESSION
     Route: 064

REACTIONS (3)
  - Convulsion neonatal [None]
  - Dysphagia [None]
  - Maternal drugs affecting foetus [None]
